FAERS Safety Report 4690082-4 (Version None)
Quarter: 2005Q2

REPORT INFORMATION
  Report Type: 
  Country: None (occurrence: None)
  Receive Date: 20050614
  Receipt Date: 20050523
  Transmission Date: 20051028
  Serious: Yes (Hospitalization)
  Sender: FDA-Public Use
  Company Number: 6015140

PATIENT
  Age: 82 Year
  Sex: Female

DRUGS (3)
  1. LEVOTHYROXINE SODIUM [Suspect]
     Indication: HYPOTHYROIDISM
     Dosage: 25 MCG (25 MCG, 1 IN 1 D)
     Route: 048
     Dates: start: 20050509, end: 20050518
  2. CORDORANE (AMIODARONE HYDROCHLORIDE) [Concomitant]
  3. MODURETIC (HYDROCHLOROTHIAZIDE, AMLORIDE) [Concomitant]

REACTIONS (9)
  - DERMATITIS ALLERGIC [None]
  - DERMATITIS CONTACT [None]
  - DRUG HYPERSENSITIVITY [None]
  - ERYTHEMA [None]
  - FOOD ALLERGY [None]
  - OEDEMA [None]
  - PSORIASIS [None]
  - RASH [None]
  - SKIN EXFOLIATION [None]
